FAERS Safety Report 23315855 (Version 1)
Quarter: 2023Q4

REPORT INFORMATION
  Report Type: Report from Study
  Country: CN (occurrence: CN)
  Receive Date: 20231219
  Receipt Date: 20231219
  Transmission Date: 20240109
  Serious: No
  Sender: FDA-Public Use
  Company Number: CN-PFIZER INC-PV202300203046

PATIENT
  Age: 102 Year
  Sex: Female
  Weight: 50 kg

DRUGS (1)
  1. NIRMATRELVIR\RITONAVIR [Suspect]
     Active Substance: NIRMATRELVIR\RITONAVIR
     Indication: COVID-19
     Dosage: [NIRMATRELVIR 300MG]/[RITONAVIR 100MG], 2X/DAY (BID), ROUTE: PC
     Dates: start: 20220422, end: 20220502

REACTIONS (1)
  - Overdose [Unknown]
